FAERS Safety Report 11948165 (Version 2)
Quarter: 2016Q3

REPORT INFORMATION
  Report Type: Report from Study
  Country: US (occurrence: US)
  Receive Date: 20160125
  Receipt Date: 20160719
  Transmission Date: 20161109
  Serious: Yes (Hospitalization, Other)
  Sender: FDA-Public Use
  Company Number: PHHO2012US021892

PATIENT
  Age: 72 Year
  Sex: Female
  Weight: 61.9 kg

DRUGS (1)
  1. PAZOPANIB [Suspect]
     Active Substance: PAZOPANIB
     Indication: RENAL CELL CARCINOMA
     Dosage: 600 MG, QD
     Route: 048
     Dates: start: 20120807, end: 20120826

REACTIONS (5)
  - Cardiomyopathy [Recovered/Resolved]
  - Alanine aminotransferase increased [Recovered/Resolved]
  - Dehydration [Recovered/Resolved]
  - Blood bilirubin increased [Recovered/Resolved]
  - Cardiac failure congestive [Recovered/Resolved]

NARRATIVE: CASE EVENT DATE: 20120829
